FAERS Safety Report 4480533-2 (Version None)
Quarter: 2004Q4

REPORT INFORMATION
  Report Type: 
  Country: None (occurrence: None)
  Receive Date: 20041019
  Receipt Date: 20041006
  Transmission Date: 20050328
  Serious: Yes (Death, Other)
  Sender: FDA-Public Use
  Company Number: 2004075203

PATIENT
  Age: 38 Year
  Sex: Female

DRUGS (4)
  1. NEURONTIN [Suspect]
     Indication: ILL-DEFINED DISORDER
     Dosage: 600 MG (300 MG, 2 IN 1 D), ORAL
     Route: 048
  2. RISPERDAL [Suspect]
     Indication: SCHIZOAFFECTIVE DISORDER
     Dosage: 5 MG (1 D), ORAL
     Route: 048
  3. DIAZEPAM [Suspect]
     Indication: MUSCLE SPASMS
     Dosage: 40 DROP (20 DROP 2 IN 1D)ORAL
     Route: 048
  4. HYDROMORPHONE HYDROCHLORIDE [Suspect]
     Indication: PAIN IN EXTREMITY
     Dosage: 2 MG , 2 IN I DAY, ORAL
     Route: 048

REACTIONS (2)
  - PULMONARY EMBOLISM [None]
  - THROMBOPHLEBITIS PELVIC VEIN [None]
